FAERS Safety Report 8950624 (Version 1)
Quarter: 2012Q4

REPORT INFORMATION
  Report Type: 
  Country: IN (occurrence: IN)
  Receive Date: 20121207
  Receipt Date: 20121207
  Transmission Date: 20130627
  Serious: Yes (Other)
  Sender: FDA-Public Use
  Company Number: IN-MERCK-1212IND000987

PATIENT
  Age: 50 Year
  Sex: Female

DRUGS (1)
  1. JANUVIA [Suspect]
     Dosage: UNK UNK, qd
     Route: 048

REACTIONS (3)
  - Brain neoplasm [Unknown]
  - Asthenia [Unknown]
  - Speech disorder [Unknown]
